FAERS Safety Report 14537405 (Version 1)
Quarter: 2018Q1

REPORT INFORMATION
  Report Type: Spontaneous
  Country: GB (occurrence: GB)
  Receive Date: 20180215
  Receipt Date: 20180215
  Transmission Date: 20180509
  Serious: Yes (Hospitalization, Other)
  Sender: FDA-Public Use
  Company Number: GB-TEVA-2018-GB-858497

PATIENT
  Age: 56 Year
  Sex: Female

DRUGS (10)
  1. TAPENTADOL HYDROCHLORIDE [Concomitant]
     Active Substance: TAPENTADOL HYDROCHLORIDE
  2. FOLIC ACID. [Concomitant]
     Active Substance: FOLIC ACID
  3. TEICOPLANIN [Concomitant]
     Active Substance: TEICOPLANIN
  4. CHLORAMBUCIL [Concomitant]
     Active Substance: CHLORAMBUCIL
  5. ORAMORPH [Concomitant]
     Active Substance: MORPHINE SULFATE
  6. CODEINE HYDROCHLORIDE [Concomitant]
     Active Substance: CODEINE HYDROCHLORIDE
  7. CLINDAMYCIN HYDROCHLORIDE. [Suspect]
     Active Substance: CLINDAMYCIN HYDROCHLORIDE
     Indication: SKIN ULCER
     Route: 065
  8. PARACETAMOL [Concomitant]
     Active Substance: ACETAMINOPHEN
  9. SERTRALINE HYDROCHLORIDE. [Concomitant]
     Active Substance: SERTRALINE HYDROCHLORIDE
  10. PREGABALIN. [Concomitant]
     Active Substance: PREGABALIN

REACTIONS (4)
  - Diarrhoea [Unknown]
  - Dehydration [Unknown]
  - Hypokalaemia [Unknown]
  - Clostridial infection [Not Recovered/Not Resolved]
